FAERS Safety Report 8357515-3 (Version None)
Quarter: 2012Q2

REPORT INFORMATION
  Report Type: 
  Country: None (occurrence: None)
  Receive Date: 20120511
  Receipt Date: 20120430
  Transmission Date: 20120825
  Serious: Yes (Other)
  Sender: FDA-Public Use
  Company Number: 2012P1020952

PATIENT
  Age: 67 Year
  Sex: Female

DRUGS (1)
  1. DIPHENHYDRAMINE HCL [Suspect]
     Indication: ERYTHEMA
     Dosage: TOP
     Route: 061

REACTIONS (4)
  - RASH PRURITIC [None]
  - BACTERIAL INFECTION [None]
  - NEUTROPHILIA [None]
  - LEUKOCYTOSIS [None]
